FAERS Safety Report 4491672-4 (Version None)
Quarter: 2004Q4

REPORT INFORMATION
  Report Type: 
  Country: None (occurrence: None)
  Receive Date: 20041101
  Receipt Date: 20040130
  Transmission Date: 20050328
  Serious: Yes (Death, Hospitalization)
  Sender: FDA-Public Use
  Company Number: 04UK 0031 77

PATIENT
  Age: 70 Year
  Sex: Male

DRUGS (9)
  1. AGGRASTAT [Suspect]
     Indication: MYOCARDIAL INFARCTION
     Dosage: INTRAVENOUS
     Route: 042
     Dates: start: 20040121, end: 20040124
  2. AMOXICILLIN [Concomitant]
  3. AMOXICILLIN (AMOXICILLIN) (INJECTION) [Concomitant]
  4. ASPIRIN [Concomitant]
  5. CLARYTHROMYCIN (CLARITHROMYCIN) [Concomitant]
  6. CLOPIDOGREL BISULFATE (CLOPIDOGREL SULFATE) [Concomitant]
  7. ENOXAPARIN SODIUM [Concomitant]
  8. RETEPLASE [Concomitant]
  9. ERYTHROMYCIN [Concomitant]

REACTIONS (19)
  - ACUTE MYOCARDIAL INFARCTION [None]
  - ANTINEUTROPHIL CYTOPLASMIC ANTIBODY POSITIVE [None]
  - BENIGN PROSTATIC HYPERPLASIA [None]
  - BRONCHITIS ACUTE [None]
  - CARDIAC ARREST [None]
  - CORONARY ARTERY ATHEROSCLEROSIS [None]
  - CORONARY ARTERY THROMBOSIS [None]
  - GASTRITIS EROSIVE [None]
  - GLOMERULONEPHRITIS [None]
  - HAEMOGLOBIN DECREASED [None]
  - HEPATIC CONGESTION [None]
  - HEPATIC STEATOSIS [None]
  - IDIOPATHIC CAPILLARITIS [None]
  - NEUROPATHY PERIPHERAL [None]
  - PLEURAL ADHESION [None]
  - PULMONARY HAEMORRHAGE [None]
  - RENAL FAILURE [None]
  - URINARY BLADDER HAEMORRHAGE [None]
  - VENTRICULAR FIBRILLATION [None]
